FAERS Safety Report 24376970 (Version 6)
Quarter: 2025Q2

REPORT INFORMATION
  Report Type: Report from Study
  Country: US (occurrence: US)
  Receive Date: 20240930
  Receipt Date: 20250619
  Transmission Date: 20250717
  Serious: Yes (Hospitalization)
  Sender: SUNOVION
  Company Number: US-SUMITOMO PHARMA SWITZERLAND GMBH-2024SPA003099

PATIENT

DRUGS (2)
  1. ORGOVYX [Suspect]
     Active Substance: RELUGOLIX
     Indication: Prostate cancer
     Route: 048
     Dates: start: 20240808, end: 20240808
  2. ORGOVYX [Suspect]
     Active Substance: RELUGOLIX
     Dosage: 120 MG, QD
     Route: 048
     Dates: start: 20240809

REACTIONS (8)
  - Influenza [Unknown]
  - Dysphagia [Unknown]
  - Weight decreased [Unknown]
  - Blood albumin abnormal [Unknown]
  - Spondylitis [Unknown]
  - Abdominal pain [Recovering/Resolving]
  - Constipation [Unknown]
  - Incorrect dose administered [Unknown]
